FAERS Safety Report 21047164 (Version 1)
Quarter: 2022Q3

REPORT INFORMATION
  Report Type: Spontaneous
  Country: ES (occurrence: ES)
  Receive Date: 20220706
  Receipt Date: 20220706
  Transmission Date: 20221027
  Serious: Yes (Death, Hospitalization)
  Sender: FDA-Public Use
  Company Number: ES-Accord-268009

PATIENT
  Age: 50 Year
  Sex: Female
  Weight: 60 kg

DRUGS (5)
  1. TEMOZOLOMIDE [Suspect]
     Active Substance: TEMOZOLOMIDE
     Indication: Glioblastoma
     Dosage: 1X/DAY
     Route: 048
     Dates: start: 20200916, end: 20201028
  2. GLASDEGIB [Suspect]
     Active Substance: GLASDEGIB
     Indication: Glioblastoma
     Dosage: 1X/DAY
     Route: 048
     Dates: start: 20200916, end: 20210804
  3. DEXAMETHASONE [Concomitant]
     Active Substance: DEXAMETHASONE
     Indication: Headache
     Dates: start: 20210314
  4. TEMOZOLOMIDE [Suspect]
     Active Substance: TEMOZOLOMIDE
     Indication: Glioblastoma
     Dosage: DURING 5 DAYS EVERY 28 DAYS
     Route: 048
     Dates: start: 20201125, end: 20201130
  5. TEMOZOLOMIDE [Suspect]
     Active Substance: TEMOZOLOMIDE
     Indication: Glioblastoma
     Dosage: DURING 5 DAYS EVERY 28 DAYS
     Route: 048
     Dates: start: 20201223, end: 20210419

REACTIONS (2)
  - Nervous system disorder [Fatal]
  - Neoplasm progression [Fatal]

NARRATIVE: CASE EVENT DATE: 20210731
